FAERS Safety Report 4379262-5 (Version None)
Quarter: 2004Q2

REPORT INFORMATION
  Report Type: 
  Country: None (occurrence: None)
  Receive Date: 20040610
  Receipt Date: 20040525
  Transmission Date: 20050107
  Serious: Yes (Hospitalization)
  Sender: FDA-Public Use
  Company Number: 701922

PATIENT
  Age: 31 Year
  Sex: Female
  Weight: 116.5744 kg

DRUGS (1)
  1. AMEVIVE [Suspect]
     Indication: PSORIASIS
     Dosage: 15 MG  QW IM
     Route: 030
     Dates: start: 20040310

REACTIONS (1)
  - ASTHMA [None]
